FAERS Safety Report 9920503 (Version 1)
Quarter: 2014Q1

REPORT INFORMATION
  Report Type: Spontaneous
  Country: US (occurrence: US)
  Receive Date: 20140224
  Receipt Date: 20140224
  Transmission Date: 20141002
  Serious: No
  Sender: FDA-Public Use
  Company Number: US-NOVEN-13US008289

PATIENT
  Age: 58 Year
  Sex: Female

DRUGS (2)
  1. MINIVELLE [Suspect]
     Indication: HOT FLUSH
     Dosage: 0.037 MG, UNK
     Route: 062
     Dates: start: 20131120
  2. ESTRADIOL [Concomitant]
     Indication: HOT FLUSH
     Dosage: 1 PUMP, QD
     Route: 061

REACTIONS (2)
  - Frequent bowel movements [Not Recovered/Not Resolved]
  - Fluid retention [Not Recovered/Not Resolved]
